FAERS Safety Report 6310122-6 (Version None)
Quarter: 2009Q3

REPORT INFORMATION
  Report Type: 
  Country: None (occurrence: None)
  Receive Date: 20090814
  Receipt Date: 20090806
  Transmission Date: 20100115
  Serious: Yes (Disabling)
  Sender: FDA-Public Use
  Company Number: DE-WATSON-2009-06307

PATIENT
  Age: 50 Year
  Sex: Female

DRUGS (1)
  1. FERRLECIT [Suspect]
     Indication: IRON DEFICIENCY
     Dosage: 62.5 MG, SINGLE (SOLUTION FOR INJECTION)
     Route: 042
     Dates: start: 20080915, end: 20080915

REACTIONS (5)
  - ERYTHEMA [None]
  - HYPERTHERMIA [None]
  - INJECTION SITE HAEMATOMA [None]
  - NEURALGIA [None]
  - WRONG TECHNIQUE IN DRUG USAGE PROCESS [None]
